FAERS Safety Report 22662983 (Version 3)
Quarter: 2024Q2

REPORT INFORMATION
  Report Type: Report from Study
  Country: JP (occurrence: JP)
  Receive Date: 20230703
  Receipt Date: 20240527
  Transmission Date: 20240715
  Serious: Yes (Other)
  Sender: FDA-Public Use
  Company Number: JP-JNJFOC-20181027661

PATIENT
  Age: 49 Year
  Sex: Male

DRUGS (16)
  1. RILPIVIRINE [Suspect]
     Active Substance: RILPIVIRINE
     Indication: HIV infection
     Route: 048
     Dates: start: 20121018, end: 20181231
  2. RILPIVIRINE [Suspect]
     Active Substance: RILPIVIRINE
     Route: 048
     Dates: start: 20220715, end: 20220909
  3. TRUVADA [Suspect]
     Active Substance: EMTRICITABINE\TENOFOVIR DISOPROXIL FUMARATE
     Indication: HIV infection
     Route: 048
     Dates: start: 20070514, end: 20140313
  4. EPZICOM [Suspect]
     Active Substance: ABACAVIR SULFATE\LAMIVUDINE
     Indication: HIV infection
     Route: 048
     Dates: start: 20140314, end: 20181231
  5. VIREAD [Concomitant]
     Active Substance: TENOFOVIR DISOPROXIL FUMARATE
     Indication: HIV infection
     Route: 048
     Dates: start: 20050206, end: 20070513
  6. EFAVIRENZ [Concomitant]
     Active Substance: EFAVIRENZ
     Indication: HIV infection
     Route: 048
     Dates: start: 20050206, end: 20121017
  7. EPIVIR [Concomitant]
     Active Substance: LAMIVUDINE
     Indication: HIV infection
     Route: 048
     Dates: start: 20050206, end: 20070513
  8. EMTRICITABINE\RILPIVIRINE HYDROCHLORIDE\TENOFOVIR ALAFENAMIDE FUMARATE [Concomitant]
     Active Substance: EMTRICITABINE\RILPIVIRINE HYDROCHLORIDE\TENOFOVIR ALAFENAMIDE FUMARATE
     Indication: HIV infection
     Route: 048
     Dates: start: 20190101, end: 20220714
  9. VOCABRIA [Concomitant]
     Active Substance: CABOTEGRAVIR SODIUM
     Indication: HIV infection
     Route: 048
     Dates: start: 20220715, end: 20220909
  10. VOCABRIA [Concomitant]
     Active Substance: CABOTEGRAVIR SODIUM
     Route: 030
     Dates: start: 20220909
  11. RILPIVIRINE [Concomitant]
     Active Substance: RILPIVIRINE
     Indication: HIV infection
     Route: 030
     Dates: start: 20220909
  12. RAMOSETRON HYDROCHLORIDE [Concomitant]
     Active Substance: RAMOSETRON HYDROCHLORIDE
     Indication: Irritable bowel syndrome
     Route: 048
     Dates: start: 20160512, end: 20170104
  13. FLAGYL [Concomitant]
     Active Substance: METRONIDAZOLE\METRONIDAZOLE HYDROCHLORIDE
     Indication: Amoebic dysentery
     Dosage: UNKNOWN
     Route: 065
     Dates: start: 20181005, end: 20181029
  14. PAROMOMYCIN SULFATE [Concomitant]
     Active Substance: PAROMOMYCIN SULFATE
     Indication: Amoebic dysentery
     Dosage: UNKNOWN
     Route: 065
     Dates: start: 20181116, end: 20181120
  15. MIYA-BM [Concomitant]
     Active Substance: CLOSTRIDIUM BUTYRICUM SPORES STRAIN M-55
     Indication: Prophylaxis
     Dosage: DOSE UNKNOWN
     Route: 048
     Dates: start: 20200401
  16. ROSUVASTATIN [Concomitant]
     Active Substance: ROSUVASTATIN
     Indication: Dyslipidaemia
     Dosage: DOSE UNKNOWN
     Route: 048
     Dates: start: 20200110

REACTIONS (4)
  - Amoebic dysentery [Recovered/Resolved]
  - Beta 2 microglobulin urine increased [Recovering/Resolving]
  - Protein urine present [Recovering/Resolving]
  - Irritable bowel syndrome [Recovering/Resolving]

NARRATIVE: CASE EVENT DATE: 20131227
